FAERS Safety Report 5313255-6 (Version None)
Quarter: 2007Q1

REPORT INFORMATION
  Report Type: 
  Country: None (occurrence: None)
  Receive Date: 20070201
  Receipt Date: 20060227
  Transmission Date: 20070707
  Serious: No
  Sender: FDA-Public Use
  Company Number: 06P-131-0326535-00

PATIENT
  Sex: Female

DRUGS (2)
  1. DEPACON [Suspect]
     Indication: CONVULSION
     Dosage: INTRAVENOUS
     Route: 042
  2. PHENYTOIN SODIUM [Concomitant]

REACTIONS (1)
  - PANCREATITIS [None]
